FAERS Safety Report 12368294 (Version 2)
Quarter: 2020Q1

REPORT INFORMATION
  Report Type: Report from Study
  Country: AU (occurrence: AU)
  Receive Date: 20160513
  Receipt Date: 20200305
  Transmission Date: 20200409
  Serious: Yes (Other)
  Sender: FDA-Public Use
  Company Number: AU-JNJFOC-20160511761

PATIENT
  Age: 34 Year
  Sex: Female

DRUGS (1)
  1. STELARA [Suspect]
     Active Substance: USTEKINUMAB
     Indication: PSORIASIS
     Dosage: ONGOING
     Route: 058

REACTIONS (2)
  - Coma [Not Recovered/Not Resolved]
  - Pneumonia legionella [Not Recovered/Not Resolved]

NARRATIVE: CASE EVENT DATE: 20160502
